FAERS Safety Report 18276747 (Version 2)
Quarter: 2020Q4

REPORT INFORMATION
  Report Type: Spontaneous
  Country: JP (occurrence: JP)
  Receive Date: 20200917
  Receipt Date: 20201002
  Transmission Date: 20210113
  Serious: No
  Sender: FDA-Public Use
  Company Number: NVSJ2020JP008790

PATIENT
  Age: 78 Year
  Sex: Male

DRUGS (2)
  1. BEOVU [Suspect]
     Active Substance: BROLUCIZUMAB-DBLL
     Indication: POLYPOIDAL CHOROIDAL VASCULOPATHY
     Dosage: UNK
     Route: 031
     Dates: start: 20200612, end: 20200612
  2. AFLIBERCEPT [Suspect]
     Active Substance: AFLIBERCEPT
     Indication: POLYPOIDAL CHOROIDAL VASCULOPATHY
     Dosage: 13 TIMES, TAE
     Route: 031

REACTIONS (3)
  - Product use in unapproved indication [Unknown]
  - Anterior chamber cell [Unknown]
  - Iritis [Recovered/Resolved]

NARRATIVE: CASE EVENT DATE: 20200613
